FAERS Safety Report 8983722 (Version 1)
Quarter: 2012Q4

REPORT INFORMATION
  Report Type: 
  Country: PL (occurrence: PL)
  Receive Date: 20121224
  Receipt Date: 20121224
  Transmission Date: 20130627
  Serious: Yes (Other)
  Sender: FDA-Public Use
  Company Number: PL-ROCHE-1066132

PATIENT

DRUGS (11)
  1. MYCOPHENOLATE MOFETIL [Suspect]
     Indication: PROPHYLAXIS AGAINST TRANSPLANT REJECTION
     Route: 065
  2. CYCLOSPORINE [Suspect]
     Indication: RENAL TRANSPLANT
     Dosage: CSA
     Route: 065
  3. AZATHIOPRINE [Suspect]
     Indication: RENAL TRANSPLANT
     Dosage: AZA
     Route: 065
  4. TACROLIMUS [Suspect]
     Indication: RENAL TRANSPLANT
     Route: 065
  5. SIROLIMUS [Suspect]
     Indication: RENAL TRANSPLANT
     Route: 065
  6. OKT3 [Suspect]
     Indication: RENAL TRANSPLANT
     Route: 065
  7. ANTITHYMOCYTE GLOBULIN [Suspect]
     Indication: RENAL TRANSPLANT
     Route: 065
  8. BASILIXIMAB [Suspect]
     Indication: RENAL TRANSPLANT
     Route: 065
  9. DACLIZUMAB [Suspect]
     Indication: RENAL TRANSPLANT
     Route: 065
  10. PREDNISOLONE [Suspect]
     Indication: RENAL TRANSPLANT
     Route: 065
  11. METHYLPREDNISOLONE [Suspect]
     Indication: RENAL TRANSPLANT
     Route: 065

REACTIONS (2)
  - Basal cell carcinoma [Unknown]
  - Squamous cell carcinoma [Unknown]
